FAERS Safety Report 5367800-5 (Version None)
Quarter: 2007Q2

REPORT INFORMATION
  Report Type: 
  Country: None (occurrence: None)
  Receive Date: 20070622
  Receipt Date: 20070613
  Transmission Date: 20071010
  Serious: Yes (Hospitalization)
  Sender: FDA-Public Use
  Company Number: FR-ASTRAZENECA-2007CG00908

PATIENT
  Age: 77 Year
  Sex: Male

DRUGS (4)
  1. CASODEX [Suspect]
     Indication: PROSTATE CANCER
     Route: 048
  2. ISOBAR [Suspect]
     Indication: ESSENTIAL HYPERTENSION
     Route: 048
     Dates: end: 20061122
  3. VAXIGRIP [Suspect]
     Indication: INFLUENZA IMMUNISATION
     Route: 058
     Dates: start: 20061020, end: 20061020
  4. ENANTONE [Suspect]
     Indication: PROSTATE CANCER
     Route: 058
     Dates: start: 20061105

REACTIONS (2)
  - DERMATITIS EXFOLIATIVE [None]
  - PRURITUS [None]
